FAERS Safety Report 24305060 (Version 1)
Quarter: 2024Q3

REPORT INFORMATION
  Report Type: Spontaneous
  Country: FR (occurrence: None)
  Receive Date: 20240911
  Receipt Date: 20240911
  Transmission Date: 20241017
  Serious: Yes (Hospitalization)
  Sender: ASTRAZENECA
  Company Number: 2024A199899

PATIENT
  Age: 59 Year
  Sex: Male
  Weight: 110 kg

DRUGS (1)
  1. TICAGRELOR [Suspect]
     Active Substance: TICAGRELOR
     Indication: Myocardial infarction
     Dosage: 90 MG/DAY
     Route: 048
     Dates: start: 20240725

REACTIONS (1)
  - Conduction disorder [Not Recovered/Not Resolved]

NARRATIVE: CASE EVENT DATE: 20240725
